FAERS Safety Report 11243991 (Version 1)
Quarter: 2015Q3

REPORT INFORMATION
  Report Type: Spontaneous
  Country: US (occurrence: US)
  Receive Date: 20150707
  Receipt Date: 20150707
  Transmission Date: 20151125
  Serious: No
  Sender: FDA-Public Use
  Company Number: US-MYLANLABS-2014M1009859

PATIENT
  Age: 51 Year
  Sex: Female
  Weight: 118 kg

DRUGS (8)
  1. ETHRANE [Concomitant]
     Active Substance: ENFLURANE
  2. FENTANYL. [Concomitant]
     Active Substance: FENTANYL
     Dosage: 50 MG, PRN, 250MCG TOTAL
     Route: 040
  3. VECURONIUM BROMIDE. [Suspect]
     Active Substance: VECURONIUM BROMIDE
     Indication: RELAXATION THERAPY
  4. SUCCINYL CHOLINE [Concomitant]
     Active Substance: SUCCINYLCHOLINE
     Dosage: UNK
     Route: 042
     Dates: start: 20141030, end: 20141030
  5. SCOPOLAMINE                        /00008701/ [Concomitant]
     Active Substance: SCOPOLAMINE
     Indication: PROCEDURAL NAUSEA
  6. VECURONIUM BROMIDE. [Suspect]
     Active Substance: VECURONIUM BROMIDE
     Indication: SEDATION
     Dosage: 6 MG, ONCE, 2 MG Q 10 TO 15 MINUTES
     Route: 042
     Dates: start: 20141030, end: 20141030
  7. TRAZODONE [Concomitant]
     Active Substance: TRAZODONE HYDROCHLORIDE
  8. SERTRALINE [Concomitant]
     Active Substance: SERTRALINE HYDROCHLORIDE

REACTIONS (2)
  - Drug ineffective [Recovered/Resolved]
  - Muscle twitching [Recovered/Resolved]

NARRATIVE: CASE EVENT DATE: 20141030
